FAERS Safety Report 5779869-4 (Version None)
Quarter: 2008Q2

REPORT INFORMATION
  Report Type: 
  Country: None (occurrence: None)
  Receive Date: 20080620
  Receipt Date: 20080507
  Transmission Date: 20081010
  Serious: No
  Sender: FDA-Public Use
  Company Number: US-BAYER-200822775NA

PATIENT
  Age: 34 Year
  Sex: Female
  Weight: 61 kg

DRUGS (2)
  1. YAZ [Suspect]
     Indication: PREMENSTRUAL SYNDROME
     Route: 048
     Dates: start: 20080416
  2. SYNTHROID [Concomitant]

REACTIONS (1)
  - CONTACT LENS INTOLERANCE [None]
